FAERS Safety Report 7331417-3 (Version None)
Quarter: 2011Q1

REPORT INFORMATION
  Report Type: 
  Country: None (occurrence: None)
  Receive Date: 20110224
  Receipt Date: 20110210
  Transmission Date: 20110831
  Serious: Yes (Other)
  Sender: FDA-Public Use
  Company Number: AE 2011-054

PATIENT
  Sex: Female

DRUGS (1)
  1. PRIALT [Suspect]
     Indication: PAIN
     Dosage: INTRATHECAL
     Route: 037
     Dates: start: 20100401, end: 20100501

REACTIONS (5)
  - DROOLING [None]
  - EYE MOVEMENT DISORDER [None]
  - UNRESPONSIVE TO STIMULI [None]
  - FALL [None]
  - CONVERSION DISORDER [None]
